FAERS Safety Report 13622033 (Version 1)
Quarter: 2017Q2

REPORT INFORMATION
  Report Type: Spontaneous
  Country: US (occurrence: US)
  Receive Date: 20170607
  Receipt Date: 20170607
  Transmission Date: 20170830
  Serious: No
  Sender: FDA-Public Use
  Company Number: US-ROCHE-1873150

PATIENT
  Sex: Female

DRUGS (2)
  1. XELODA [Suspect]
     Active Substance: CAPECITABINE
     Indication: BONE CANCER
     Dosage: 3 TABLETS (1500 MG) TWICE DAILY 2 WEEKS ON AND 2 WEEKS OFF
     Route: 048
     Dates: start: 20140612
  2. XELODA [Suspect]
     Active Substance: CAPECITABINE
     Indication: NEOPLASM MALIGNANT

REACTIONS (1)
  - Dry skin [Unknown]
